FAERS Safety Report 21265609 (Version 7)
Quarter: 2022Q4

REPORT INFORMATION
  Report Type: Spontaneous
  Country: GB (occurrence: GB)
  Receive Date: 20220829
  Receipt Date: 20221227
  Transmission Date: 20230113
  Serious: Yes (Life-Threatening, Hospitalization, Disabling, Other)
  Sender: FDA-Public Use
  Company Number: GB-MYLANLABS-2022M1088846

PATIENT
  Age: 45 Year
  Sex: Female

DRUGS (16)
  1. CLOZARIL [Suspect]
     Active Substance: CLOZAPINE
     Indication: Schizophrenia
     Dosage: 150 MILLIGRAM, BID
     Route: 048
     Dates: start: 20141011, end: 20221121
  2. CLOZARIL [Suspect]
     Active Substance: CLOZAPINE
     Dosage: 150 MILLIGRAM (SAT 19TH 19:05)
     Route: 065
  3. CLOZARIL [Suspect]
     Active Substance: CLOZAPINE
     Dosage: 150 MILLIGRAM (MON 21TH 19:05) SO WITHIN 48HRS
     Route: 065
  4. VALPROATE SODIUM [Concomitant]
     Active Substance: VALPROATE SODIUM
     Indication: Epilepsy
     Dosage: 800 MILLIGRAM, BID
     Route: 048
  5. PIRENZEPINE [Concomitant]
     Active Substance: PIRENZEPINE
     Indication: Salivary hypersecretion
     Dosage: 50 MILLIGRAM, BID
     Route: 048
     Dates: start: 201911
  6. OMEPRAZOLE [Concomitant]
     Active Substance: OMEPRAZOLE
     Dosage: 20 MILLIGRAM
     Route: 065
  7. OMEPRAZOLE [Concomitant]
     Active Substance: OMEPRAZOLE
     Dosage: 40 MILLIGRAM
     Route: 048
  8. LERCANIDIPINE [Concomitant]
     Active Substance: LERCANIDIPINE
     Dosage: 20 MILLIGRAM
     Route: 048
  9. CHOLECALCIFEROL [Concomitant]
     Active Substance: CHOLECALCIFEROL
     Indication: Calcium deficiency
     Dosage: 800 INTERNATIONAL UNIT, QD
     Route: 048
  10. FERROUS SULFATE [Concomitant]
     Active Substance: FERROUS SULFATE
     Indication: Anaemia
     Dosage: 200 MILLIGRAM, BID
     Route: 065
  11. DESOGESTREL [Concomitant]
     Active Substance: DESOGESTREL
     Dosage: 75 MICROGRAM
     Route: 048
  12. FERROUS FUMARATE [Concomitant]
     Active Substance: FERROUS FUMARATE
     Dosage: 200 MILLIGRAM, BID
     Route: 048
     Dates: start: 202206
  13. MEBEVERINE [Concomitant]
     Active Substance: MEBEVERINE
     Dosage: 135 MILLIGRAM, TID
     Route: 048
     Dates: start: 202207
  14. DOCUSATE [Concomitant]
     Active Substance: DOCUSATE
     Dosage: 100 MILLIGRAM, TID
     Route: 048
     Dates: start: 202204
  15. POLYETHYLENE GLYCOL 3350\POTASSIUM CHLORIDE\SODIUM BICARBONATE\SODIUM [Concomitant]
     Active Substance: POLYETHYLENE GLYCOL 3350\POTASSIUM CHLORIDE\SODIUM BICARBONATE\SODIUM CHLORIDE
     Dosage: UNK (T-TT) (START DATE: 05-SEP-2022)
     Route: 048
  16. SENNA [Concomitant]
     Active Substance: SENNA LEAF\SENNOSIDES\SENNOSIDES A AND B
     Dosage: UNK (7.5-15MG )
     Route: 048
     Dates: start: 202206

REACTIONS (15)
  - Intestinal obstruction [Recovered/Resolved with Sequelae]
  - Intestinal perforation [Recovered/Resolved with Sequelae]
  - COVID-19 [Recovered/Resolved]
  - Platelet count decreased [Recovered/Resolved]
  - Gastrointestinal disorder [Unknown]
  - Psychotic disorder [Recovering/Resolving]
  - White blood cell count decreased [Recovered/Resolved]
  - Neutrophil count decreased [Recovered/Resolved]
  - Anaemia [Recovering/Resolving]
  - Red blood cell count decreased [Recovering/Resolving]
  - Diarrhoea [Recovered/Resolved with Sequelae]
  - Abdominal pain upper [Recovered/Resolved with Sequelae]
  - Neoplasm malignant [Unknown]
  - White blood cell count increased [Recovering/Resolving]
  - Neutrophil count increased [Recovering/Resolving]

NARRATIVE: CASE EVENT DATE: 20220726
